FAERS Safety Report 8962169 (Version 1)
Quarter: 2012Q4

REPORT INFORMATION
  Report Type: 
  Country: GB (occurrence: GB)
  Receive Date: 20121212
  Receipt Date: 20121212
  Transmission Date: 20130627
  Serious: Yes (Hospitalization)
  Sender: FDA-Public Use
  Company Number: GB-TEVA-374801ISR

PATIENT
  Age: 50 Year
  Sex: Female
  Weight: 69 kg

DRUGS (9)
  1. LAMOTRIGINE [Suspect]
     Indication: EPILEPSY
     Route: 048
     Dates: start: 20120621, end: 20120912
  2. AZATHIOPRINE [Concomitant]
     Indication: SYSTEMIC LUPUS ERYTHEMATOSUS
     Route: 048
     Dates: start: 2010, end: 20120907
  3. MST CONTINUS [Concomitant]
     Indication: ARTHRALGIA
     Dosage: 20 Milligram Daily; Long term
     Route: 048
  4. T4 IMMUNOTHERAPY [Concomitant]
     Dosage: Long term
  5. ADCAL [Concomitant]
     Dosage: 2 Dosage forms Daily;
  6. CLOPIDOGREL [Concomitant]
     Dosage: Long term
  7. AMITRIPTYLINE [Concomitant]
     Dosage: Long term
  8. SOLIFENACIN [Concomitant]
     Dosage: 10 Milligram Daily;
  9. GABAPENTIN [Concomitant]

REACTIONS (2)
  - Aplasia pure red cell [Recovered/Resolved]
  - Hypogammaglobulinaemia [Recovered/Resolved]
